FAERS Safety Report 4597054-9 (Version None)
Quarter: 2005Q1

REPORT INFORMATION
  Report Type: 
  Country: None (occurrence: None)
  Receive Date: 20050301
  Receipt Date: 20050209
  Transmission Date: 20050727
  Serious: Yes (Other)
  Sender: FDA-Public Use
  Company Number: B0371252A

PATIENT
  Age: 13 Year
  Sex: Female

DRUGS (2)
  1. LAMICTAL [Suspect]
     Indication: EPILEPSY
  2. VALPROIC ACID [Concomitant]

REACTIONS (3)
  - COAGULOPATHY [None]
  - HEPATIC FUNCTION ABNORMAL [None]
  - TOXIC EPIDERMAL NECROLYSIS [None]
